FAERS Safety Report 23746832 (Version 1)
Quarter: 2024Q2

REPORT INFORMATION
  Report Type: Spontaneous
  Country: US (occurrence: None)
  Receive Date: 20240415
  Receipt Date: 20240415
  Transmission Date: 20240716
  Serious: No
  Sender: FDA-Public Use
  Company Number: None

PATIENT
  Sex: Male

DRUGS (8)
  1. GAMMAKED [Suspect]
     Active Substance: HUMAN IMMUNOGLOBULIN G
     Indication: Myasthenia gravis
     Dosage: FREQUENCY : AS DIRECTED;?STRENGTH: 20GM/200ML
     Route: 042
     Dates: start: 202310
  2. SODIUM CHLORIDE [Concomitant]
     Active Substance: SODIUM CHLORIDE
  3. HEPARIN [Concomitant]
  4. SOD CHLOR POSIFLUS [Concomitant]
  5. SODIUM CHLORIDE [Concomitant]
     Active Substance: SODIUM CHLORIDE
  6. DIPHENHYDRAMINE [Concomitant]
  7. RYSTIGGO SDV [Concomitant]
  8. MYCOPHENOLATE MOFETIL [Concomitant]

REACTIONS (1)
  - Herpes zoster [None]
